FAERS Safety Report 6970609-X (Version None)
Quarter: 2010Q3

REPORT INFORMATION
  Report Type: 
  Country: None (occurrence: None)
  Receive Date: 20100908
  Receipt Date: 20081015
  Transmission Date: 20110219
  Serious: Yes (Other)
  Sender: FDA-Public Use
  Company Number: CN-ROCHE-724002

PATIENT

DRUGS (5)
  1. CAPECITABINE [Suspect]
     Dosage: FROM DAY 22 TO DAY 35.
     Route: 048
  2. OXALIPLATIN [Suspect]
     Dosage: DAY 1 OF FLOFOX4 REGIMEN, WITH 5% GLUCOSE 500ML.
     Route: 041
  3. CALCIUM FOLINATE [Suspect]
     Dosage: DAY 1AND DAY 2 OF FOLFOX4 REGIMEN, WITH 250ML 0.9% PHYSIOLOGICAL SALINE
     Route: 041
  4. FLUOROURACIL [Suspect]
     Dosage: D1 + 2.
     Route: 042
  5. VITAMIN B6 [Concomitant]
     Dosage: NON-ROCHE DRUG.
     Route: 048

REACTIONS (5)
  - BLOOD DISORDER [None]
  - GASTROENTERITIS RADIATION [None]
  - PALMAR-PLANTAR ERYTHRODYSAESTHESIA SYNDROME [None]
  - RADIATION MUCOSITIS [None]
  - RADIATION SKIN INJURY [None]
